FAERS Safety Report 15231543 (Version 1)
Quarter: 2018Q3

REPORT INFORMATION
  Report Type: Spontaneous
  Country: JP (occurrence: JP)
  Receive Date: 20180802
  Receipt Date: 20180802
  Transmission Date: 20181010
  Serious: Yes (Death, Other)
  Sender: FDA-Public Use
  Company Number: JP-CELGENEUS-JPN-20180710366

PATIENT
  Age: 76 Year
  Sex: Male

DRUGS (1)
  1. VIDAZA [Suspect]
     Active Substance: AZACITIDINE
     Indication: CHRONIC MYELOMONOCYTIC LEUKAEMIA
     Dosage: 100 MILLIGRAM
     Route: 065

REACTIONS (8)
  - Pneumonia [Recovered/Resolved]
  - Splenomegaly [Unknown]
  - Death [Fatal]
  - Pneumonia [Unknown]
  - Bacteraemia [Recovered/Resolved]
  - White blood cell count increased [Unknown]
  - White blood cell count decreased [Unknown]
  - Blast cell count increased [Unknown]
